FAERS Safety Report 9442159 (Version 1)
Quarter: 2013Q3

REPORT INFORMATION
  Report Type: Report from Study
  Country: IN (occurrence: IN)
  Receive Date: 20130806
  Receipt Date: 20130806
  Transmission Date: 20140515
  Serious: Yes (Death, Hospitalization)
  Sender: FDA-Public Use
  Company Number: PHHY2013IN083542

PATIENT
  Age: 35 Year
  Sex: Female

DRUGS (3)
  1. ACLASTA [Suspect]
     Indication: OSTEOPOROSIS
     Dosage: 5MG/100ML IV
     Route: 042
     Dates: start: 20121204
  2. SUMO                               /03539801/ [Concomitant]
     Indication: PAIN
     Dosage: UNK UKN, UNK
     Route: 048
  3. CALCIROL [Concomitant]
     Indication: MINERAL SUPPLEMENTATION
     Dosage: 60 LARGE IV ONCE IN 07 DAYS
     Route: 048

REACTIONS (8)
  - Blood calcium abnormal [Fatal]
  - Blood calcium increased [Unknown]
  - Prothrombin level increased [Unknown]
  - Movement disorder [Unknown]
  - Urinary tract disorder [Unknown]
  - Panic reaction [Unknown]
  - Muscle spasms [Unknown]
  - Malaise [Unknown]
